FAERS Safety Report 11106920 (Version 2)
Quarter: 2015Q2

REPORT INFORMATION
  Report Type: Spontaneous
  Country: US (occurrence: US)
  Receive Date: 20150512
  Receipt Date: 20150610
  Transmission Date: 20150821
  Serious: No
  Sender: FDA-Public Use
  Company Number: US-PFIZER INC-2015153635

PATIENT
  Age: 65 Year
  Sex: Female
  Weight: 76.19 kg

DRUGS (1)
  1. GABAPENTIN. [Suspect]
     Active Substance: GABAPENTIN
     Indication: FIBROMYALGIA
     Dosage: UNK
     Dates: end: 201504

REACTIONS (8)
  - Drug intolerance [Unknown]
  - Depression [Unknown]
  - Screaming [Unknown]
  - Crying [Unknown]
  - Irritability [Unknown]
  - Feeling abnormal [Unknown]
  - Tension [Unknown]
  - Drug ineffective [Unknown]
